FAERS Safety Report 4994610-0 (Version None)
Quarter: 2006Q2

REPORT INFORMATION
  Report Type: 
  Country: None (occurrence: None)
  Receive Date: 20060505
  Receipt Date: 20060103
  Transmission Date: 20061013
  Serious: Yes (Death)
  Sender: FDA-Public Use
  Company Number: US-MERCK-0601USA00278

PATIENT
  Age: 73 Year
  Sex: Female
  Weight: 57 kg

DRUGS (3)
  1. VIOXX [Suspect]
     Indication: ARTHRITIS
     Route: 048
     Dates: start: 19990723, end: 20000101
  2. VIOXX [Suspect]
     Route: 048
     Dates: start: 20000530, end: 20010101
  3. VIOXX [Suspect]
     Route: 048
     Dates: start: 20010912, end: 20011226

REACTIONS (29)
  - ABDOMINAL PAIN [None]
  - ACUTE MYOCARDIAL INFARCTION [None]
  - ALOPECIA [None]
  - ARTHRITIS [None]
  - BACK INJURY [None]
  - CARDIO-RESPIRATORY ARREST [None]
  - COLONIC POLYP [None]
  - DEPRESSION [None]
  - DIARRHOEA [None]
  - DIVERTICULUM [None]
  - DYSPEPSIA [None]
  - DYSPHAGIA [None]
  - DYSURIA [None]
  - GASTRITIS [None]
  - GASTROINTESTINAL DISORDER [None]
  - GASTROOESOPHAGEAL REFLUX DISEASE [None]
  - GLAUCOMA [None]
  - HAEMORRHOIDS [None]
  - HIATUS HERNIA [None]
  - LETHARGY [None]
  - OEDEMA [None]
  - OESOPHAGEAL DISORDER [None]
  - OESOPHAGITIS [None]
  - OSTEOPOROSIS [None]
  - RECTAL HAEMORRHAGE [None]
  - RECTAL POLYP [None]
  - ROSACEA [None]
  - SINUS CONGESTION [None]
  - TREMOR [None]
